FAERS Safety Report 19025547 (Version 1)
Quarter: 2021Q1

REPORT INFORMATION
  Report Type: Report from Study
  Country: DE (occurrence: DE)
  Receive Date: 20210318
  Receipt Date: 20210318
  Transmission Date: 20210420
  Serious: Yes (Other)
  Sender: FDA-Public Use
  Company Number: DE-MYLANLABS-2021M1015949

PATIENT

DRUGS (2)
  1. BEMCENTINIB. [Suspect]
     Active Substance: BEMCENTINIB
     Indication: ACUTE MYELOID LEUKAEMIA
     Dosage: 200 MILLIGRAM, QD IN A 21 DAYS CYCLE
     Route: 048
  2. CYTARABINE. [Suspect]
     Active Substance: CYTARABINE
     Indication: ACUTE MYELOID LEUKAEMIA
     Dosage: UNK, CYCLE STANDARD LOW DOSE FOR 10 DAYS IN A 21 DAYS CYCLE
     Route: 065

REACTIONS (1)
  - Electrocardiogram QT prolonged [Unknown]
